FAERS Safety Report 14675150 (Version 1)
Quarter: 2018Q1

REPORT INFORMATION
  Report Type: Spontaneous
  Country: US (occurrence: US)
  Receive Date: 20180323
  Receipt Date: 20180323
  Transmission Date: 20180509
  Serious: No
  Sender: FDA-Public Use
  Company Number: US-WEST-WARD PHARMACEUTICALS CORP.-US-H14001-17-04039

PATIENT
  Sex: Female

DRUGS (1)
  1. FLUTICASONE PROPIONATE. [Suspect]
     Active Substance: FLUTICASONE PROPIONATE
     Indication: HYPERSENSITIVITY
     Route: 065

REACTIONS (6)
  - Epistaxis [Unknown]
  - Ocular hyperaemia [Unknown]
  - Nasal pruritus [Unknown]
  - Eye pruritus [Unknown]
  - Lacrimation increased [Unknown]
  - Drug ineffective [Unknown]
